FAERS Safety Report 25165659 (Version 1)
Quarter: 2025Q2

REPORT INFORMATION
  Report Type: Spontaneous
  Country: US (occurrence: US)
  Receive Date: 20250407
  Receipt Date: 20250407
  Transmission Date: 20250717
  Serious: No
  Sender: Kenvue
  Company Number: US-KENVUE-20250309590

PATIENT
  Age: 8 Decade
  Sex: Female

DRUGS (1)
  1. WOMENS ROGAINE UNSCENTED [Suspect]
     Active Substance: MINOXIDIL
     Indication: Alopecia
     Dosage: HALF A CAPFUL AND A LITTLE, ONCE A DAY
     Route: 061
     Dates: start: 20241223

REACTIONS (3)
  - Hair growth abnormal [Unknown]
  - Hair colour changes [Unknown]
  - Overdose [Unknown]

NARRATIVE: CASE EVENT DATE: 20241223
